FAERS Safety Report 5508010-8 (Version None)
Quarter: 2007Q4

REPORT INFORMATION
  Report Type: 
  Country: None (occurrence: None)
  Receive Date: 20071106
  Receipt Date: 20071028
  Transmission Date: 20080405
  Serious: Yes (Hospitalization)
  Sender: FDA-Public Use
  Company Number: JP-AMGEN-US236167

PATIENT
  Sex: Female

DRUGS (5)
  1. ENBREL [Suspect]
     Indication: RHEUMATOID ARTHRITIS
     Route: 058
     Dates: start: 20050621
  2. INSULIN [Concomitant]
  3. RISEDRONATE SODIUM [Concomitant]
  4. PREDONINE [Concomitant]
  5. LOXONIN [Concomitant]

REACTIONS (1)
  - DISSEMINATED TUBERCULOSIS [None]
